FAERS Safety Report 7514887-7 (Version None)
Quarter: 2011Q2

REPORT INFORMATION
  Report Type: 
  Country: None (occurrence: None)
  Receive Date: 20110601
  Receipt Date: 20110527
  Transmission Date: 20111010
  Serious: Yes (Life-Threatening, Hospitalization, Other)
  Sender: FDA-Public Use
  Company Number: US-ASTRAZENECA-2011SE25519

PATIENT
  Sex: Male

DRUGS (6)
  1. ABILIFY [Concomitant]
  2. KLONOPIN [Concomitant]
  3. SEROQUEL [Suspect]
     Indication: BIPOLAR DISORDER
     Route: 048
  4. LAMICTAL [Concomitant]
  5. TRAZODONE HCL [Concomitant]
     Indication: SLEEP DISORDER
     Dosage: 50-100 MG AS NEEDED
  6. EFFEXOR XR [Concomitant]

REACTIONS (11)
  - CARDIAC ARREST [None]
  - SENSORY LOSS [None]
  - DRUG DOSE OMISSION [None]
  - NEOPLASM MALIGNANT [None]
  - BRAIN INJURY [None]
  - MEMORY IMPAIRMENT [None]
  - DEPRESSION [None]
  - PROSTATIC OPERATION [None]
  - SUICIDE ATTEMPT [None]
  - ROAD TRAFFIC ACCIDENT [None]
  - DYSPHAGIA [None]
